FAERS Safety Report 13095669 (Version 2)
Quarter: 2018Q1

REPORT INFORMATION
  Report Type: Spontaneous
  Country: US (occurrence: US)
  Receive Date: 20170109
  Receipt Date: 20180104
  Transmission Date: 20180508
  Serious: No
  Sender: FDA-Public Use
  Company Number: US-AUROBINDO-AUR-APU-2016-13303

PATIENT
  Age: 68 Year
  Sex: Female
  Weight: 74.83 kg

DRUGS (1)
  1. CEPHALEXIN CAPSULES USP 500 MG [Suspect]
     Active Substance: CEPHALEXIN
     Indication: INFECTION
     Dosage: 3 CAPSULES, ONCE A DAY
     Route: 065
     Dates: start: 20161012, end: 20161018

REACTIONS (5)
  - Therapeutic response decreased [Recovered/Resolved]
  - Drug ineffective [Unknown]
  - Product substitution issue [Recovered/Resolved]
  - Oedema peripheral [Recovered/Resolved]
  - Condition aggravated [Recovered/Resolved]

NARRATIVE: CASE EVENT DATE: 20161013
